FAERS Safety Report 9308816 (Version 1)
Quarter: 2013Q2

REPORT INFORMATION
  Report Type: Spontaneous
  Country: DE (occurrence: DE)
  Receive Date: 20130524
  Receipt Date: 20130524
  Transmission Date: 20140414
  Serious: Yes (Death)
  Sender: FDA-Public Use
  Company Number: DE-ELI_LILLY_AND_COMPANY-DE201305004899

PATIENT
  Sex: Female

DRUGS (2)
  1. FORSTEO [Suspect]
     Indication: OSTEOPOROSIS
     Dosage: UNK, QD
     Route: 058
     Dates: start: 20121030
  2. CALCIUM WITH VITAMIN D [Concomitant]

REACTIONS (4)
  - Cardiac failure [Fatal]
  - Kyphosis [Unknown]
  - Lung disorder [Unknown]
  - Cardiac disorder [Unknown]
